FAERS Safety Report 8017763-9 (Version None)
Quarter: 2012Q1

REPORT INFORMATION
  Report Type: 
  Country: None (occurrence: None)
  Receive Date: 20120103
  Receipt Date: 20111221
  Transmission Date: 20120608
  Serious: No
  Sender: FDA-Public Use
  Company Number: US-PFIZER INC-2011312441

PATIENT
  Sex: Female

DRUGS (6)
  1. VENLAFAXINE HYDROCHLORIDE [Concomitant]
     Dosage: 75 MG,(1/DAY WITH CYMBALTA 60MG FOR 4 DAYS,THEN STOP CYMBALTA AND INCREASE TO 2 VENLAFAXINE IN A.M.)
     Route: 048
  2. TOPAMAX [Concomitant]
     Dosage: 50 MG, 1X/DAY (DAILY AT BED TIME)
     Route: 048
  3. MORPHINE SULFATE [Suspect]
     Dosage: UNK
  4. RESTORIL [Concomitant]
     Dosage: 15 MG, 1X/DAY (DAILY AT BED TIME)
     Route: 048
  5. CYMBALTA [Concomitant]
     Dosage: 60 MG, UNK
  6. ATIVAN [Concomitant]
     Dosage: 0.5 MG, UNK (0.5 MG BY MOUTH PRN BID)
     Route: 048

REACTIONS (1)
  - DRUG HYPERSENSITIVITY [None]
